FAERS Safety Report 11138266 (Version 2)
Quarter: 2015Q2

REPORT INFORMATION
  Report Type: Spontaneous
  Country: DE (occurrence: DE)
  Receive Date: 20150526
  Receipt Date: 20150611
  Transmission Date: 20150821
  Serious: Yes (Death, Hospitalization, Other)
  Sender: FDA-Public Use
  Company Number: PHHY2015DE062751

PATIENT
  Sex: Female
  Weight: 75 kg

DRUGS (3)
  1. MAGNESIUM [Concomitant]
     Active Substance: MAGNESIUM
     Indication: PRODUCT USED FOR UNKNOWN INDICATION
     Route: 065
  2. ZOMETA [Suspect]
     Active Substance: ZOLEDRONIC ACID
     Indication: PLASMACYTOMA
     Dosage: 4 MG, ONCE/SINGLE
     Route: 042
     Dates: start: 20150331
  3. VITAMIN D3 [Concomitant]
     Active Substance: CHOLECALCIFEROL
     Indication: PRODUCT USED FOR UNKNOWN INDICATION
     Dosage: 1000 IE/DAY, QD
     Route: 048

REACTIONS (33)
  - Acute kidney injury [Fatal]
  - Bence Jones proteinuria [Fatal]
  - Upper gastrointestinal haemorrhage [Unknown]
  - Decreased appetite [Unknown]
  - Cardiac arrest [Unknown]
  - Paralysis [Unknown]
  - Renal function test abnormal [Fatal]
  - Plasmacytoma [Fatal]
  - Hypotension [Fatal]
  - Muscle spasms [Unknown]
  - Arthralgia [Unknown]
  - Myocardial infarction [Fatal]
  - Hypokinesia [Fatal]
  - Tachycardia [Fatal]
  - Polyuria [Fatal]
  - Spinal shock [Fatal]
  - Abdominal pain upper [Unknown]
  - Dyspnoea [Unknown]
  - Dyspnoea exertional [Fatal]
  - Anaemia [Fatal]
  - Faecal incontinence [Unknown]
  - Urinary incontinence [Unknown]
  - Off label use [Unknown]
  - Angina pectoris [Fatal]
  - Fluid retention [Fatal]
  - Spinal cord compression [Fatal]
  - Thrombocytopenia [Fatal]
  - Left ventricular dysfunction [Fatal]
  - Melaena [Unknown]
  - Osteolysis [Unknown]
  - Nausea [Unknown]
  - Metabolic acidosis [Fatal]
  - Performance status decreased [Unknown]

NARRATIVE: CASE EVENT DATE: 201505
